FAERS Safety Report 11166161 (Version 2)
Quarter: 2015Q2

REPORT INFORMATION
  Report Type: Report from Study
  Country: DE (occurrence: DE)
  Receive Date: 20150605
  Receipt Date: 20150623
  Transmission Date: 20150821
  Serious: Yes (Death)
  Sender: FDA-Public Use
  Company Number: PHHY2015DE066451

PATIENT
  Sex: Female

DRUGS (1)
  1. SANDOSTATIN LAR DEPOT [Suspect]
     Active Substance: OCTREOTIDE ACETATE
     Indication: PANCREATIC NEUROENDOCRINE TUMOUR
     Dosage: 30 MG, EVERY 28 DAYS
     Route: 030
     Dates: start: 20090901, end: 20150401

REACTIONS (3)
  - Metastasis [Fatal]
  - Malignant neoplasm progression [Fatal]
  - Drug resistance [Unknown]
